FAERS Safety Report 6626722-X (Version None)
Quarter: 2010Q1

REPORT INFORMATION
  Report Type: 
  Country: None (occurrence: None)
  Receive Date: 20100311
  Receipt Date: 20100309
  Transmission Date: 20100710
  Serious: Yes (Other)
  Sender: FDA-Public Use
  Company Number: US-ASTRAZENECA-2009SE08642

PATIENT
  Age: 42 Year
  Sex: Male
  Weight: 113.4 kg

DRUGS (4)
  1. SEROQUEL [Suspect]
     Indication: SLEEP DISORDER
     Route: 048
     Dates: start: 20010101
  2. CYMBALTA [Concomitant]
     Indication: DEPRESSION
  3. EFFEXOR XR [Concomitant]
     Indication: DEPRESSION
  4. METANX [Concomitant]
     Indication: DEPRESSION
     Dosage: UNKNOWN MG 1  DAILY

REACTIONS (8)
  - BLOOD CHOLESTEROL INCREASED [None]
  - BLOOD TRIGLYCERIDES INCREASED [None]
  - CARDIAC DISORDER [None]
  - DIABETES MELLITUS [None]
  - HYPERLIPIDAEMIA [None]
  - NEUROPATHY PERIPHERAL [None]
  - OBESITY [None]
  - RENAL DISORDER [None]
